FAERS Safety Report 9219578 (Version 1)
Quarter: 2013Q2

REPORT INFORMATION
  Report Type: Spontaneous
  Country: US (occurrence: US)
  Receive Date: 20130409
  Receipt Date: 20130409
  Transmission Date: 20140414
  Serious: No
  Sender: FDA-Public Use
  Company Number: US-009507513-1304USA002571

PATIENT
  Age: 57 Year
  Sex: Female

DRUGS (2)
  1. VICTRELIS [Suspect]
     Dosage: 800 MG QAM AND 800 MG QPM
     Route: 048
     Dates: start: 20110916, end: 20120121
  2. PEG-INTRON [Suspect]
     Dosage: 150 MG, UNK
     Route: 058
     Dates: start: 20110818

REACTIONS (10)
  - Food aversion [Unknown]
  - Pain [Unknown]
  - Headache [Unknown]
  - Pyrexia [Unknown]
  - Influenza like illness [Unknown]
  - Diarrhoea [Unknown]
  - Dysgeusia [Unknown]
  - Fatigue [Unknown]
  - Nausea [Unknown]
  - Vomiting [Unknown]
